FAERS Safety Report 6482159-8 (Version None)
Quarter: 2009Q4

REPORT INFORMATION
  Report Type: 
  Country: None (occurrence: None)
  Receive Date: 20091208
  Receipt Date: 20090504
  Transmission Date: 20100525
  Serious: No
  Sender: FDA-Public Use
  Company Number: US-AMGEN-KDL341736

PATIENT
  Sex: Female
  Weight: 49.9 kg

DRUGS (5)
  1. ENBREL [Suspect]
     Indication: RHEUMATOID ARTHRITIS
     Route: 058
     Dates: start: 20070405
  2. METHOTREXATE [Concomitant]
     Route: 048
     Dates: start: 20070322
  3. FOSAMAX [Concomitant]
  4. NABUMETONE [Concomitant]
  5. LIPITOR [Concomitant]

REACTIONS (5)
  - COUGH [None]
  - EYE INFECTION VIRAL [None]
  - INFECTION [None]
  - INFLUENZA [None]
  - NASAL CONGESTION [None]
